FAERS Safety Report 8762085 (Version 2)
Quarter: 2013Q4

REPORT INFORMATION
  Report Type: Spontaneous
  Country: US (occurrence: US)
  Receive Date: 20120830
  Receipt Date: 20131101
  Transmission Date: 20140711
  Serious: No
  Sender: FDA-Public Use
  Company Number: US-009507513-1208USA004295

PATIENT
  Sex: Female

DRUGS (3)
  1. PEGINTRON [Suspect]
     Dosage: 80 MICROGRAM/0.5 ML, 0.5ML QW
     Route: 058
  2. REBETOL [Concomitant]
     Route: 048
  3. VITAMINS (UNSPECIFIED) [Concomitant]
     Dosage: UNK

REACTIONS (2)
  - Red blood cell count decreased [Unknown]
  - White blood cell count decreased [Unknown]
